FAERS Safety Report 8388521-0 (Version None)
Quarter: 2012Q2

REPORT INFORMATION
  Report Type: 
  Country: None (occurrence: None)
  Receive Date: 20120525
  Receipt Date: 20120511
  Transmission Date: 20120825
  Serious: Yes (Other)
  Sender: FDA-Public Use
  Company Number: CHPA2012US010008

PATIENT
  Sex: Female

DRUGS (2)
  1. PRILOSEC [Concomitant]
     Indication: OESOPHAGEAL ULCER
     Dosage: UNK
     Route: 048
     Dates: start: 20120401
  2. EXCEDRIN EXTRA STRENGTH TABLETS [Suspect]
     Indication: HEADACHE
     Dosage: 2 DF, QD
     Route: 048

REACTIONS (4)
  - SOMNOLENCE [None]
  - RED BLOOD CELL COUNT INCREASED [None]
  - WHITE BLOOD CELL COUNT INCREASED [None]
  - NEPHROPATHY [None]
